FAERS Safety Report 5870641-3 (Version None)
Quarter: 2008Q3

REPORT INFORMATION
  Report Type: 
  Country: None (occurrence: None)
  Receive Date: 20080904
  Receipt Date: 20080828
  Transmission Date: 20090109
  Serious: Yes (Other)
  Sender: FDA-Public Use
  Company Number: PHRM2008FR01524

PATIENT
  Sex: Female

DRUGS (7)
  1. ZOMETA [Suspect]
     Indication: METASTASES TO BONE
     Dosage: 4 MG, UNK
     Route: 042
     Dates: start: 20061005, end: 20080201
  2. FASLODEX [Concomitant]
  3. PROPOXYPHENE HCL AND ACETAMINOPHEN [Concomitant]
  4. FLECAINE [Concomitant]
  5. ASPIRIN [Concomitant]
  6. HEMIGOXINE [Concomitant]
  7. HYZAAR [Concomitant]

REACTIONS (4)
  - NUCLEAR MAGNETIC RESONANCE IMAGING ABNORMAL [None]
  - OSTEONECROSIS [None]
  - PAIN IN JAW [None]
  - SINUSITIS [None]
